FAERS Safety Report 6790192-1 (Version None)
Quarter: 2010Q2

REPORT INFORMATION
  Report Type: 
  Country: None (occurrence: None)
  Receive Date: 20100624
  Receipt Date: 20100611
  Transmission Date: 20101027
  Serious: Yes (Congenital Anomaly)
  Sender: FDA-Public Use
  Company Number: US-SANOFI-AVENTIS-2010SA034354

PATIENT
  Age: 30 Year
  Sex: Female

DRUGS (1)
  1. LOVENOX [Suspect]
     Route: 058
     Dates: start: 20050101

REACTIONS (2)
  - ABORTION SPONTANEOUS [None]
  - DRUG EXPOSURE DURING PREGNANCY [None]
